FAERS Safety Report 8198327 (Version 2)
Quarter: 2013Q3

REPORT INFORMATION
  Report Type: Report from Study
  Country: US (occurrence: US)
  Receive Date: 20111025
  Receipt Date: 20130806
  Transmission Date: 20140515
  Serious: Yes (Death)
  Sender: FDA-Public Use
  Company Number: US-ROCHE-1002753

PATIENT
  Sex: 0

DRUGS (4)
  1. TENECTEPLASE [Suspect]
     Indication: ACUTE MYOCARDIAL INFARCTION
     Route: 065
  2. MORPHINE [Concomitant]
     Indication: PAIN
     Dosage: 2-4 MG
     Route: 042
  3. ASPIRIN [Concomitant]
     Route: 065
  4. NITROGLYCERIN [Concomitant]
     Dosage: 0.4 MG OF SUBLINGUAL NITROGLYCERIN (NITRO) SPRAY OR TABLET
     Route: 065

REACTIONS (1)
  - Death [Fatal]
